FAERS Safety Report 4809752-X (Version None)
Quarter: 2005Q4

REPORT INFORMATION
  Report Type: 
  Country: None (occurrence: None)
  Receive Date: 20051024
  Receipt Date: 20051012
  Transmission Date: 20060501
  Serious: Yes (Other)
  Sender: FDA-Public Use
  Company Number: 200510IM000606

PATIENT
  Age: 67 Year
  Sex: Female

DRUGS (2)
  1. INFERGEN [Suspect]
     Indication: HEPATITIS C
     Dosage: 9 UG, TIW, SUBCUTANEOUS
     Route: 058
     Dates: start: 20050829
  2. DIOVAN HCT [Concomitant]

REACTIONS (8)
  - ANOREXIA [None]
  - ASTHENIA [None]
  - BREAST MASS [None]
  - FATIGUE [None]
  - HAEMOGLOBIN DECREASED [None]
  - INFLUENZA LIKE ILLNESS [None]
  - SYNCOPE [None]
  - WEIGHT DECREASED [None]
